FAERS Safety Report 18152032 (Version 1)
Quarter: 2020Q3

REPORT INFORMATION
  Report Type: Spontaneous
  Country: PE (occurrence: PE)
  Receive Date: 20200814
  Receipt Date: 20200814
  Transmission Date: 20201103
  Serious: Yes (Hospitalization)
  Sender: FDA-Public Use
  Company Number: PE-ELI_LILLY_AND_COMPANY-PE202008004555

PATIENT
  Age: 20 Year
  Sex: Female

DRUGS (2)
  1. CYRAMZA [Suspect]
     Active Substance: RAMUCIRUMAB
     Indication: OESOPHAGEAL ADENOCARCINOMA
     Dosage: UNK, UNKNOWN
     Route: 065
     Dates: start: 20180516
  2. CYRAMZA [Suspect]
     Active Substance: RAMUCIRUMAB
     Dosage: UNK, UNKNOWN
     Route: 065
     Dates: start: 20180720

REACTIONS (2)
  - Sepsis [Unknown]
  - Diarrhoea [Unknown]

NARRATIVE: CASE EVENT DATE: 20180605
